FAERS Safety Report 4881972-8 (Version None)
Quarter: 2006Q1

REPORT INFORMATION
  Report Type: 
  Country: None (occurrence: None)
  Receive Date: 20060117
  Receipt Date: 20060113
  Transmission Date: 20060701
  Serious: Yes (Other)
  Sender: FDA-Public Use
  Company Number: DK-GLAXOSMITHKLINE-B0406650A

PATIENT
  Age: 36 Year
  Sex: Female

DRUGS (4)
  1. LAMICTAL [Suspect]
     Indication: BIPOLAR I DISORDER
     Dosage: 25MG UNKNOWN
     Route: 065
     Dates: start: 20051210, end: 20060106
  2. LITHIUM [Concomitant]
  3. RIVOTRIL [Concomitant]
  4. TOLVON [Concomitant]

REACTIONS (10)
  - AGGRESSION [None]
  - ANGER [None]
  - CONDITION AGGRAVATED [None]
  - DEPRESSED MOOD [None]
  - DIZZINESS [None]
  - FEELING OF DESPAIR [None]
  - INFLAMMATION [None]
  - MIXED CONNECTIVE TISSUE DISEASE [None]
  - SUICIDAL IDEATION [None]
  - SYSTEMIC LUPUS ERYTHEMATOSUS [None]
